FAERS Safety Report 11262921 (Version 1)
Quarter: 2015Q3

REPORT INFORMATION
  Report Type: Spontaneous
  Country: JP (occurrence: JP)
  Receive Date: 20150710
  Receipt Date: 20150710
  Transmission Date: 20151125
  Serious: Yes (Other)
  Sender: FDA-Public Use
  Company Number: JP-BAXTER-2015BAX037319

PATIENT
  Age: 8 Year
  Sex: Female

DRUGS (3)
  1. IFEX [Suspect]
     Active Substance: IFOSFAMIDE
     Indication: NEPHROBLASTOMA
     Route: 042
  2. CELLTOP 25 MG, CAPSULE [Suspect]
     Active Substance: ETOPOSIDE
     Indication: NEPHROBLASTOMA
     Route: 048
  3. CARBOPLATIN. [Suspect]
     Active Substance: CARBOPLATIN
     Indication: NEPHROBLASTOMA
     Route: 065

REACTIONS (4)
  - Nephroblastoma [Unknown]
  - Renal tubular acidosis [Recovering/Resolving]
  - Disease recurrence [Recovering/Resolving]
  - Renal cancer recurrent [Unknown]
